FAERS Safety Report 4979077-0 (Version None)
Quarter: 2006Q2

REPORT INFORMATION
  Report Type: 
  Country: None (occurrence: None)
  Receive Date: 20060414
  Receipt Date: 20060405
  Transmission Date: 20061013
  Serious: Yes (Hospitalization)
  Sender: FDA-Public Use
  Company Number: ZONI002291

PATIENT
  Age: 5 Year
  Sex: Male

DRUGS (6)
  1. ZONISAMIDE [Suspect]
     Indication: COMPLEX PARTIAL SEIZURES
     Dosage: 15 MG, 2 IN 1 D, ORAL; SEE IMAGE
     Route: 048
     Dates: start: 20051110, end: 20051129
  2. ZONISAMIDE [Suspect]
     Indication: COMPLEX PARTIAL SEIZURES
     Dosage: 15 MG, 2 IN 1 D, ORAL; SEE IMAGE
     Route: 048
     Dates: start: 20051130, end: 20051220
  3. ZONISAMIDE [Suspect]
     Indication: COMPLEX PARTIAL SEIZURES
     Dosage: 15 MG, 2 IN 1 D, ORAL; SEE IMAGE
     Route: 048
     Dates: start: 20051221, end: 20060214
  4. ZONISAMIDE [Suspect]
     Indication: COMPLEX PARTIAL SEIZURES
     Dosage: 15 MG, 2 IN 1 D, ORAL; SEE IMAGE
     Route: 048
     Dates: start: 20060215, end: 20060307
  5. ZONISAMIDE [Suspect]
     Indication: COMPLEX PARTIAL SEIZURES
     Dosage: 15 MG, 2 IN 1 D, ORAL; SEE IMAGE
     Route: 048
     Dates: start: 20060308, end: 20060313
  6. VALPROATE SODIUM [Concomitant]

REACTIONS (4)
  - DEPRESSED LEVEL OF CONSCIOUSNESS [None]
  - DYSLALIA [None]
  - FEELING ABNORMAL [None]
  - PSYCHOTIC DISORDER [None]
